FAERS Safety Report 8969168 (Version 1)
Quarter: 2012Q4

REPORT INFORMATION
  Report Type: 
  Country: US (occurrence: US)
  Receive Date: 20121218
  Receipt Date: 20121218
  Transmission Date: 20130627
  Serious: No
  Sender: FDA-Public Use
  Company Number: US-BRISTOL-MYERS SQUIBB COMPANY-16295917

PATIENT
  Age: 65 Year
  Sex: Female
  Weight: 95 kg

DRUGS (7)
  1. ABILIFY [Suspect]
     Indication: BIPOLAR II DISORDER
     Dosage: Dec08 or Dec09 (thinks it has been 3 years since starting)
     Route: 048
  2. IBUPROFEN [Suspect]
     Dosage: taking walloping doses at one point
  3. EFFEXOR XR [Suspect]
     Dosage: ran out of Effexor XR and not taken it for a week
     Route: 048
  4. METFORMIN [Concomitant]
     Indication: TYPE 2 DIABETES MELLITUS
  5. HYDROCHLOROTHIAZIDE [Concomitant]
     Indication: BLOOD PRESSURE
  6. FENOFIBRATE [Concomitant]
  7. SIMVASTATIN [Concomitant]
     Indication: BLOOD CHOLESTEROL

REACTIONS (6)
  - Insomnia [Unknown]
  - Depression [Unknown]
  - Feeling abnormal [Unknown]
  - Weight increased [Unknown]
  - Alopecia [Unknown]
  - Formication [Not Recovered/Not Resolved]
